FAERS Safety Report 18449625 (Version 2)
Quarter: 2021Q1

REPORT INFORMATION
  Report Type: Spontaneous
  Country: HR (occurrence: HR)
  Receive Date: 20201030
  Receipt Date: 20210209
  Transmission Date: 20210419
  Serious: Yes (Other)
  Sender: FDA-Public Use
  Company Number: HR-JNJFOC-20201033982

PATIENT
  Age: 32 Year
  Sex: Male

DRUGS (10)
  1. BIPERIDEN [Concomitant]
     Active Substance: BIPERIDEN
  2. SODIUM VALPROATE [Concomitant]
     Active Substance: VALPROATE SODIUM
     Route: 065
  3. SODIUM VALPROATE [Concomitant]
     Active Substance: VALPROATE SODIUM
     Route: 065
  4. CARBAMAZEPINE. [Concomitant]
     Active Substance: CARBAMAZEPINE
  5. FLUVOXAMINE [Concomitant]
     Active Substance: FLUVOXAMINE
  6. TREVICTA [Suspect]
     Active Substance: PALIPERIDONE PALMITATE
  7. TREVICTA [Suspect]
     Active Substance: PALIPERIDONE PALMITATE
  8. SODIUM VALPROATE [Concomitant]
     Active Substance: VALPROATE SODIUM
     Route: 065
  9. CLOZAPINE. [Concomitant]
     Active Substance: CLOZAPINE
  10. TREVICTA [Suspect]
     Active Substance: PALIPERIDONE PALMITATE
     Indication: SCHIZOPHRENIA
     Route: 030
     Dates: start: 201706

REACTIONS (3)
  - Schizophrenia [Recovering/Resolving]
  - Tourette^s disorder [Recovering/Resolving]
  - Extrapyramidal disorder [Recovering/Resolving]

NARRATIVE: CASE EVENT DATE: 2019
